FAERS Safety Report 9316413 (Version 1)
Quarter: 2013Q2

REPORT INFORMATION
  Report Type: Spontaneous
  Country: US (occurrence: US)
  Receive Date: 20130530
  Receipt Date: 20130530
  Transmission Date: 20140414
  Serious: No
  Sender: FDA-Public Use
  Company Number: US-009507513-1305USA012628

PATIENT
  Sex: Female

DRUGS (2)
  1. K-DUR [Suspect]
     Indication: BLOOD POTASSIUM DECREASED
     Dosage: 1 DF, QD
     Route: 048
     Dates: start: 200705
  2. SPIRIVA [Concomitant]

REACTIONS (1)
  - Adverse event [Recovering/Resolving]
